FAERS Safety Report 16130708 (Version 2)
Quarter: 2019Q2

REPORT INFORMATION
  Report Type: Spontaneous
  Country: US (occurrence: US)
  Receive Date: 20190328
  Receipt Date: 20190617
  Transmission Date: 20190711
  Serious: No
  Sender: FDA-Public Use
  Company Number: US-PFIZER INC-2019126940

PATIENT
  Age: 48 Year
  Sex: Female

DRUGS (4)
  1. CHANTIX [Suspect]
     Active Substance: VARENICLINE TARTRATE
     Indication: SMOKING CESSATION THERAPY
     Dosage: 0.5 DF, ALTERNATE DAY (HALF A PILL EVERY OTHER DAY)
  2. SERTRALINE [Concomitant]
     Active Substance: SERTRALINE HYDROCHLORIDE
     Indication: DEPRESSION
     Dosage: 100 MG, 1X/DAY
     Dates: start: 200004
  3. CHANTIX [Suspect]
     Active Substance: VARENICLINE TARTRATE
     Dosage: 10 MG, 1X/DAY
     Dates: start: 200906
  4. TOPIMAX [PREDNICARBATE] [Concomitant]
     Indication: BIPOLAR DISORDER
     Dosage: 50 MG, 1X/DAY [25 MG, 2 @ BEDTIME]
     Dates: start: 2004

REACTIONS (4)
  - Intentional product misuse [Unknown]
  - Pre-existing condition improved [Unknown]
  - Overdose [Unknown]
  - Therapeutic response unexpected [Unknown]
